FAERS Safety Report 16317273 (Version 1)
Quarter: 2019Q2

REPORT INFORMATION
  Report Type: Spontaneous
  Country: US (occurrence: US)
  Receive Date: 20190515
  Receipt Date: 20190515
  Transmission Date: 20190711
  Serious: Yes (Hospitalization)
  Sender: FDA-Public Use
  Company Number: US-TEVA-2019-US-1049632

PATIENT
  Sex: Male

DRUGS (2)
  1. ROCURONIUM [Suspect]
     Active Substance: ROCURONIUM BROMIDE
     Dosage: IV LINE OF RIGHT ARM
     Route: 042
  2. HYDROMORPHONE [Concomitant]
     Active Substance: HYDROMORPHONE
     Dosage: IV LINE OF LEFT ARM
     Route: 042

REACTIONS (4)
  - Respiratory arrest [Unknown]
  - Wrong technique in product usage process [Unknown]
  - Paralysis [Unknown]
  - Oxygen saturation decreased [Unknown]
